FAERS Safety Report 18738773 (Version 2)
Quarter: 2021Q3

REPORT INFORMATION
  Report Type: Spontaneous
  Country: US (occurrence: US)
  Receive Date: 20210114
  Receipt Date: 20210918
  Transmission Date: 20211014
  Serious: No
  Sender: FDA-Public Use
  Company Number: US-ELI_LILLY_AND_COMPANY-US202101001723

PATIENT
  Age: 68 Year
  Sex: Female

DRUGS (3)
  1. LANTUS [Concomitant]
     Active Substance: INSULIN GLARGINE
     Indication: PRODUCT USED FOR UNKNOWN INDICATION
  2. HUMALOG [Suspect]
     Active Substance: INSULIN LISPRO
     Dosage: UNK UNK, TID (SLIDING SCALE)
     Route: 065
     Dates: start: 202007
  3. HUMALOG [Suspect]
     Active Substance: INSULIN LISPRO
     Indication: TYPE 1 DIABETES MELLITUS
     Dosage: UNK UNK, TID (SLIDING SCALE)
     Route: 065
     Dates: start: 202007

REACTIONS (7)
  - Blood glucose increased [Unknown]
  - Product dose omission issue [Unknown]
  - Nasal congestion [Unknown]
  - Stress [Unknown]
  - Blood glucose increased [Recovering/Resolving]
  - Product dose omission issue [Unknown]
  - Nervousness [Unknown]

NARRATIVE: CASE EVENT DATE: 20201126
